FAERS Safety Report 25946536 (Version 1)
Quarter: 2025Q4

REPORT INFORMATION
  Report Type: Spontaneous
  Country: US (occurrence: US)
  Receive Date: 20251022
  Receipt Date: 20251022
  Transmission Date: 20260119
  Serious: No
  Sender: PACIRA
  Company Number: US-ORG100016242-2025000152

PATIENT
  Age: 52 Year
  Sex: Female

DRUGS (2)
  1. ZILRETTA [Suspect]
     Active Substance: TRIAMCINOLONE ACETONIDE
     Indication: Product used for unknown indication
     Dosage: POSSIBLE ONE KNEE
     Route: 050
     Dates: start: 2024, end: 2024
  2. ZILRETTA [Suspect]
     Active Substance: TRIAMCINOLONE ACETONIDE
     Indication: Product used for unknown indication
     Dosage: BOTH KNEES
     Route: 050
     Dates: start: 202501, end: 202501

REACTIONS (2)
  - Therapeutic response shortened [Unknown]
  - Arthralgia [Not Recovered/Not Resolved]
